FAERS Safety Report 6424108-4 (Version None)
Quarter: 2009Q4

REPORT INFORMATION
  Report Type: 
  Country: None (occurrence: None)
  Receive Date: 20091102
  Receipt Date: 20091022
  Transmission Date: 20100525
  Serious: Yes (Hospitalization)
  Sender: FDA-Public Use
  Company Number: ES-AMGEN-US366671

PATIENT
  Age: 69 Year
  Sex: Female

DRUGS (3)
  1. ENBREL [Suspect]
     Indication: RHEUMATOID ARTHRITIS
     Dates: start: 20090616
  2. LEFLUNOMIDE [Concomitant]
     Dates: start: 20081114, end: 20090616
  3. METHOTREXATE [Concomitant]
     Dates: start: 20081114, end: 20090616

REACTIONS (1)
  - TRANSITIONAL CELL CARCINOMA [None]
